FAERS Safety Report 21800581 (Version 5)
Quarter: 2023Q2

REPORT INFORMATION
  Report Type: Report from Study
  Country: DE (occurrence: DE)
  Receive Date: 20221230
  Receipt Date: 20230406
  Transmission Date: 20230722
  Serious: Yes (Hospitalization, Other)
  Sender: FDA-Public Use
  Company Number: DE-TAKEDA-2022TUS100954

PATIENT
  Age: 47 Year
  Sex: Female

DRUGS (4)
  1. HUMAN IMMUNOGLOBULIN G\HYALURONIDASE RECOMBINANT HUMAN [Suspect]
     Active Substance: HUMAN IMMUNOGLOBULIN G\HYALURONIDASE RECOMBINANT HUMAN
     Indication: Secondary immunodeficiency
     Dosage: 30 GRAM, Q4WEEKS
     Route: 058
     Dates: start: 20221220
  2. HUMAN IMMUNOGLOBULIN G\HYALURONIDASE RECOMBINANT HUMAN [Suspect]
     Active Substance: HUMAN IMMUNOGLOBULIN G\HYALURONIDASE RECOMBINANT HUMAN
     Dosage: 30 GRAM, Q4WEEKS
     Route: 058
     Dates: start: 20221220
  3. HUMAN IMMUNOGLOBULIN G\HYALURONIDASE RECOMBINANT HUMAN [Suspect]
     Active Substance: HUMAN IMMUNOGLOBULIN G\HYALURONIDASE RECOMBINANT HUMAN
     Dosage: 30 GRAM, 1/WEEK
     Route: 058
     Dates: start: 20221220
  4. HUMAN IMMUNOGLOBULIN G\HYALURONIDASE RECOMBINANT HUMAN [Suspect]
     Active Substance: HUMAN IMMUNOGLOBULIN G\HYALURONIDASE RECOMBINANT HUMAN
     Dosage: 30 GRAM, 1/WEEK
     Route: 058
     Dates: start: 20221220

REACTIONS (3)
  - Clostridial infection [Recovered/Resolved]
  - Dehydration [Recovered/Resolved]
  - Blood test abnormal [Recovered/Resolved]

NARRATIVE: CASE EVENT DATE: 20221220
